FAERS Safety Report 5308648-7 (Version None)
Quarter: 2007Q2

REPORT INFORMATION
  Report Type: 
  Country: None (occurrence: None)
  Receive Date: 20070426
  Receipt Date: 20070413
  Transmission Date: 20071010
  Serious: Yes (Hospitalization)
  Sender: FDA-Public Use
  Company Number: 2007GB00787

PATIENT
  Age: 86 Year
  Sex: Female

DRUGS (9)
  1. MEROPENEM [Suspect]
     Indication: URINARY TRACT INFECTION
     Route: 042
     Dates: start: 20070316, end: 20070322
  2. ASPIRIN [Concomitant]
     Indication: CARDIAC DISORDER
     Route: 048
  3. ATORVASTATIN CALCIUM [Concomitant]
     Indication: CARDIAC DISORDER
     Route: 048
  4. ENOXAPARIN SODIUM [Concomitant]
     Indication: PROPHYLAXIS
     Route: 058
     Dates: start: 20070308
  5. INSULIN GLARGINE [Concomitant]
     Indication: DIABETES MELLITUS NON-INSULIN-DEPENDENT
     Route: 058
  6. PARACETAMOL [Concomitant]
     Indication: ANALGESIC EFFECT
     Route: 048
     Dates: start: 20070313
  7. SENNA [Concomitant]
     Indication: CONSTIPATION
     Route: 048
  8. TOLBUTAMIDE [Concomitant]
     Indication: DIABETES MELLITUS NON-INSULIN-DEPENDENT
     Route: 048
  9. TRAZODONE HCL [Concomitant]
     Indication: ANXIETY
     Route: 048
     Dates: start: 20070314

REACTIONS (1)
  - CLOSTRIDIAL INFECTION [None]
